FAERS Safety Report 8839296 (Version 1)
Quarter: 2012Q4

REPORT INFORMATION
  Report Type: 
  Country: US (occurrence: US)
  Receive Date: 20121015
  Receipt Date: 20121015
  Transmission Date: 20130627
  Serious: No
  Sender: FDA-Public Use
  Company Number: US-GLAXOSMITHKLINE-A0962427A

PATIENT
  Age: 27 Year
  Sex: Female

DRUGS (5)
  1. DUAC [Suspect]
     Indication: ACNE
     Dosage: 1APP Per day
     Route: 061
     Dates: start: 2006
  2. VITAMIN [Concomitant]
  3. UNKNOWN MEDICATION [Concomitant]
  4. BIOTENE [Concomitant]
  5. MACROBID [Concomitant]

REACTIONS (2)
  - Drug ineffective [Not Recovered/Not Resolved]
  - Product quality issue [Unknown]
